FAERS Safety Report 9207564 (Version 3)
Quarter: 2013Q2

REPORT INFORMATION
  Report Type: Spontaneous
  Country: CN (occurrence: CN)
  Receive Date: 20130403
  Receipt Date: 20130513
  Transmission Date: 20140414
  Serious: Yes (Life-Threatening, Hospitalization)
  Sender: FDA-Public Use
  Company Number: CN-GE HEALTHCARE MEDICAL DIAGNOSTICS-VISP-PR-1303S-0474

PATIENT
  Age: 70 Year
  Sex: Female

DRUGS (2)
  1. VISIPAQUE [Suspect]
     Indication: CORONARY ARTERY OCCLUSION
     Route: 013
     Dates: start: 20130222, end: 20130222
  2. VISIPAQUE [Suspect]
     Indication: DIAGNOSTIC PROCEDURE

REACTIONS (2)
  - Anaphylactic shock [Recovering/Resolving]
  - Pneumothorax [Recovered/Resolved]
